FAERS Safety Report 23582454 (Version 2)
Quarter: 2024Q1

REPORT INFORMATION
  Report Type: Spontaneous
  Country: US (occurrence: US)
  Receive Date: 20240229
  Receipt Date: 20240314
  Transmission Date: 20240410
  Serious: No
  Sender: FDA-Public Use
  Company Number: US-BAUSCHBL-2024BNL002256

PATIENT
  Age: 77 Year
  Sex: Female

DRUGS (2)
  1. LATANOPROST [Suspect]
     Active Substance: LATANOPROST
     Indication: Glaucoma
     Route: 047
     Dates: start: 2023
  2. DEVICE [Suspect]
     Active Substance: DEVICE
     Indication: Glaucoma
     Route: 047

REACTIONS (2)
  - Eye pain [Unknown]
  - Product quality issue [Unknown]
